FAERS Safety Report 6451058-X (Version None)
Quarter: 2009Q4

REPORT INFORMATION
  Report Type: 
  Country: None (occurrence: None)
  Receive Date: 20091123
  Receipt Date: 20091117
  Transmission Date: 20100525
  Serious: Yes (Congenital Anomaly)
  Sender: FDA-Public Use
  Company Number: GXKR2009GB12558

PATIENT
  Sex: Female
  Weight: 3 kg

DRUGS (1)
  1. METFORMIN (NGX) [Suspect]
     Route: 064

REACTIONS (2)
  - CLEFT LIP [None]
  - DRUG EXPOSURE DURING PREGNANCY [None]
